FAERS Safety Report 18217255 (Version 1)
Quarter: 2020Q3

REPORT INFORMATION
  Report Type: Spontaneous
  Country: GB (occurrence: GB)
  Receive Date: 20200901
  Receipt Date: 20200901
  Transmission Date: 20201103
  Serious: Yes (Death, Hospitalization)
  Sender: FDA-Public Use
  Company Number: GB-AMNEAL PHARMACEUTICALS-2020-AMRX-02619

PATIENT
  Age: 53 Year
  Sex: Male

DRUGS (4)
  1. SOMATOTROPIN (HUMAN) [Suspect]
     Active Substance: SOMATROPIN
     Indication: MUSCLE BUILDING THERAPY
     Dosage: 1 INTERNATIONAL UNIT, 1X/DAY, ON A ?6?WEEKS ON AND 4?WEEKS OFF?
     Route: 065
  2. TAMSULOSIN [Concomitant]
     Active Substance: TAMSULOSIN
     Indication: BENIGN PROSTATIC HYPERPLASIA
     Dosage: UNK
     Route: 065
  3. METHITEST [Suspect]
     Active Substance: METHYLTESTOSTERONE
     Indication: MUSCLE BUILDING THERAPY
     Dosage: 350 MILLIGRAM, 1X/DAY, ON A ^6?WEEKS ON AND 4?WEEKS OFF^
     Route: 065
  4. LANSOPRAZOLE. [Concomitant]
     Active Substance: LANSOPRAZOLE
     Indication: PRODUCT USED FOR UNKNOWN INDICATION
     Dosage: UNK
     Route: 065

REACTIONS (8)
  - Myositis [Recovering/Resolving]
  - Drug abuse [Unknown]
  - Constipation [Unknown]
  - Rhabdomyolysis [Unknown]
  - Hypercalcaemia [Recovering/Resolving]
  - Left ventricular failure [Unknown]
  - Myocardial infarction [Fatal]
  - Focal segmental glomerulosclerosis [Not Recovered/Not Resolved]
